FAERS Safety Report 7518668-X (Version None)
Quarter: 2011Q2

REPORT INFORMATION
  Report Type: 
  Country: None (occurrence: None)
  Receive Date: 20110602
  Receipt Date: 20110518
  Transmission Date: 20111010
  Serious: Yes (Hospitalization)
  Sender: FDA-Public Use
  Company Number: PHHY2011CA43648

PATIENT
  Sex: Female

DRUGS (1)
  1. ZOLEDRONIC ACID [Suspect]
     Indication: OSTEOPOROSIS
     Dosage: 5 MG
     Route: 042
     Dates: start: 20100804

REACTIONS (11)
  - FALL [None]
  - HAEMORRHAGE [None]
  - GENERAL PHYSICAL HEALTH DETERIORATION [None]
  - PAIN [None]
  - DYSSTASIA [None]
  - MASS [None]
  - INSOMNIA [None]
  - OEDEMA PERIPHERAL [None]
  - CONTUSION [None]
  - FEELING ABNORMAL [None]
  - HIP FRACTURE [None]
